FAERS Safety Report 7868237-7 (Version None)
Quarter: 2011Q4

REPORT INFORMATION
  Report Type: 
  Country: None (occurrence: None)
  Receive Date: 20111028
  Receipt Date: 20101210
  Transmission Date: 20120403
  Serious: No
  Sender: FDA-Public Use
  Company Number: US-AMGEN-USASP2010008583

PATIENT
  Sex: Female

DRUGS (2)
  1. ENBREL [Suspect]
     Indication: PSORIASIS
  2. ENBREL [Suspect]
     Indication: PSORIATIC ARTHROPATHY
     Dates: start: 20101026

REACTIONS (6)
  - ARTHRALGIA [None]
  - CARPAL TUNNEL SYNDROME [None]
  - PAIN IN EXTREMITY [None]
  - CUBITAL TUNNEL SYNDROME [None]
  - PARAESTHESIA [None]
  - HYPOAESTHESIA [None]
